FAERS Safety Report 9404558 (Version 1)
Quarter: 2013Q3

REPORT INFORMATION
  Report Type: Spontaneous
  Country: US (occurrence: None)
  Receive Date: 20130716
  Receipt Date: 20130716
  Transmission Date: 20140515
  Serious: Yes (Hospitalization)
  Sender: FDA-Public Use
  Company Number: None

PATIENT
  Age: 69 Year
  Sex: Male
  Weight: 68.3 kg

DRUGS (2)
  1. AZATHIOPRINE [Suspect]
     Indication: AUTOIMMUNE HEPATITIS
     Route: 048
     Dates: start: 20130516, end: 20130621
  2. ALLOPURINOL [Suspect]
     Indication: GOUT
     Route: 048
     Dates: start: 20130425, end: 20130621

REACTIONS (7)
  - Anaemia macrocytic [None]
  - Fatigue [None]
  - Chest discomfort [None]
  - Dizziness [None]
  - Bone marrow failure [None]
  - Leukopenia [None]
  - Dyspnoea [None]
